FAERS Safety Report 10016286 (Version 1)
Quarter: 2014Q1

REPORT INFORMATION
  Report Type: Spontaneous
  Country: AU (occurrence: AU)
  Receive Date: 20140317
  Receipt Date: 20140317
  Transmission Date: 20141002
  Serious: No
  Sender: FDA-Public Use
  Company Number: AU-BAXTER-2013BAX015353

PATIENT
  Sex: Female

DRUGS (1)
  1. KIOVIG NORMAL IMMUNOGLOBULIN (HUMAN) 5G/50ML FOR INTRAVENOUS USE INJEC [Suspect]
     Indication: PRODUCT USED FOR UNKNOWN INDICATION
     Route: 042

REACTIONS (3)
  - Oedema [Not Recovered/Not Resolved]
  - Weight increased [Not Recovered/Not Resolved]
  - Urine output decreased [Not Recovered/Not Resolved]
